FAERS Safety Report 23587407 (Version 1)
Quarter: 2024Q1

REPORT INFORMATION
  Report Type: Spontaneous
  Country: US (occurrence: US)
  Receive Date: 20240301
  Receipt Date: 20240301
  Transmission Date: 20240410
  Serious: Yes (Hospitalization, Other)
  Sender: FDA-Public Use
  Company Number: US-PFIZER INC-202400052156

PATIENT
  Age: 73 Year
  Sex: Male
  Weight: 103.87 kg

DRUGS (1)
  1. CARBOCAINE [Suspect]
     Active Substance: MEPIVACAINE HYDROCHLORIDE
     Dosage: UNK

REACTIONS (4)
  - Orthostatic hypotension [Unknown]
  - Endodontic procedure [Unknown]
  - Near death experience [Unknown]
  - Tooth extraction [Unknown]

NARRATIVE: CASE EVENT DATE: 20240120
